FAERS Safety Report 17875878 (Version 1)
Quarter: 2020Q2

REPORT INFORMATION
  Report Type: Spontaneous
  Country: US (occurrence: US)
  Receive Date: 20200608
  Receipt Date: 20200608
  Transmission Date: 20200714
  Serious: Yes (Hospitalization, Other)
  Sender: FDA-Public Use
  Company Number: None

PATIENT
  Age: 66 Year
  Sex: Male

DRUGS (1)
  1. VARENICLINE (VARENICLINE TARTRATE 1MG TAB) [Suspect]
     Active Substance: VARENICLINE TARTRATE
     Indication: SMOKING CESSATION THERAPY
     Route: 048
     Dates: start: 20190731, end: 20200311

REACTIONS (4)
  - Epilepsy [None]
  - Seizure [None]
  - Fall [None]
  - Clavicle fracture [None]

NARRATIVE: CASE EVENT DATE: 20191008
